FAERS Safety Report 6214031-2 (Version None)
Quarter: 2009Q2

REPORT INFORMATION
  Report Type: 
  Country: None (occurrence: None)
  Receive Date: 20090604
  Receipt Date: 20090529
  Transmission Date: 20091009
  Serious: Yes (Hospitalization)
  Sender: FDA-Public Use
  Company Number: US-JNJFOC-20090400092

PATIENT
  Sex: Male

DRUGS (4)
  1. RISPERDAL [Suspect]
     Indication: DRUG USE FOR UNKNOWN INDICATION
     Route: 048
  2. SEROQUEL [Concomitant]
     Dosage: HS
     Route: 065
  3. CARBAMAZEPINE [Concomitant]
     Route: 065
  4. GUANFACINE HYDROCHLORIDE [Concomitant]
     Route: 065

REACTIONS (2)
  - INFLUENZA [None]
  - PNEUMONIA BACTERIAL [None]
